FAERS Safety Report 25755455 (Version 1)
Quarter: 2025Q3

REPORT INFORMATION
  Report Type: Spontaneous
  Country: US (occurrence: US)
  Receive Date: 20250903
  Receipt Date: 20250903
  Transmission Date: 20251020
  Serious: Yes (Hospitalization, Other)
  Sender: ZYDUS PHARM
  Company Number: US-CADILA HEALTHCARE LIMITED-US-ZYDUS-127972

PATIENT

DRUGS (1)
  1. AMLODIPINE [Suspect]
     Active Substance: AMLODIPINE BESYLATE
     Indication: Suicide attempt
     Route: 065

REACTIONS (8)
  - Respiratory failure [Unknown]
  - Blood creatinine increased [Unknown]
  - Blood lactic acid increased [Unknown]
  - Leukocytosis [Unknown]
  - Non-cardiogenic pulmonary oedema [Unknown]
  - Hypotension [Unknown]
  - Hyperglycaemia [Unknown]
  - Intentional overdose [Unknown]
